FAERS Safety Report 7581362-3 (Version None)
Quarter: 2011Q2

REPORT INFORMATION
  Report Type: 
  Country: None (occurrence: None)
  Receive Date: 20110629
  Receipt Date: 20110621
  Transmission Date: 20111010
  Serious: Yes (Death, Life-Threatening, Other)
  Sender: FDA-Public Use
  Company Number: JP-CEPHALON-2011003121

PATIENT
  Age: 63 Year
  Sex: Male

DRUGS (12)
  1. GLUCOSE [Concomitant]
  2. BENDAMUSTINE HCL [Suspect]
     Indication: B-CELL LYMPHOMA
     Route: 042
     Dates: start: 20110603, end: 20110604
  3. SODIUM CHLORIDE [Concomitant]
  4. VALACYCLOVIR HYDROCHLORIDE [Concomitant]
     Dates: start: 20110611
  5. PREDNISOLONE [Concomitant]
     Dates: start: 20110602, end: 20110603
  6. DORIPENEM MONOHYDRATE [Concomitant]
     Dates: start: 20110606
  7. POLYETHYLENE GLYCOL [Concomitant]
     Dates: start: 20110606, end: 20110606
  8. RITUXIMAB [Suspect]
     Indication: B-CELL LYMPHOMA
     Route: 042
     Dates: start: 20110602, end: 20110602
  9. PENTAMIDINE ISETHIONATE [Concomitant]
     Dates: start: 20110608, end: 20110608
  10. FENTANYL CITRATE [Concomitant]
     Dates: start: 20110602
  11. AMINO ACIDS NOS W/CARBOHYD. NOS/ELECTROL. NOS [Concomitant]
  12. FUROSEMIDE [Concomitant]
     Dates: start: 20110529

REACTIONS (5)
  - RESPIRATORY FAILURE [None]
  - ATRIAL FLUTTER [None]
  - BLOOD PRESSURE DECREASED [None]
  - TUMOUR LYSIS SYNDROME [None]
  - HYPOXIA [None]
